FAERS Safety Report 7047021-0 (Version None)
Quarter: 2010Q4

REPORT INFORMATION
  Report Type: 
  Country: None (occurrence: None)
  Receive Date: 20101015
  Receipt Date: 20101008
  Transmission Date: 20110411
  Serious: Yes (Hospitalization)
  Sender: FDA-Public Use
  Company Number: CA-SANOFI-AVENTIS-2010SA062114

PATIENT
  Sex: Female

DRUGS (2)
  1. DIABETA [Suspect]
     Route: 048
     Dates: start: 20090701
  2. DIABETA [Suspect]
     Route: 048

REACTIONS (3)
  - ABDOMINAL PAIN [None]
  - COLITIS [None]
  - MALAISE [None]
